FAERS Safety Report 23175551 (Version 3)
Quarter: 2023Q4

REPORT INFORMATION
  Report Type: Report from Study
  Country: FR (occurrence: FR)
  Receive Date: 20231113
  Receipt Date: 20231207
  Transmission Date: 20240110
  Serious: Yes (Hospitalization)
  Sender: FDA-Public Use
  Company Number: FR-SA-2023SA317625

PATIENT
  Age: 74 Year
  Sex: Male
  Weight: 62 kg

DRUGS (46)
  1. ISATUXIMAB [Suspect]
     Active Substance: ISATUXIMAB
     Indication: Plasma cell myeloma refractory
     Dosage: 10 MG/KG, QW
     Route: 042
     Dates: start: 20220926, end: 20221024
  2. ISATUXIMAB [Suspect]
     Active Substance: ISATUXIMAB
     Dosage: 10 MG/KG, BIW
     Route: 042
     Dates: start: 20221025, end: 20221121
  3. ISATUXIMAB [Suspect]
     Active Substance: ISATUXIMAB
     Dosage: 10 MG/KG, BIW
     Route: 042
     Dates: start: 20221122, end: 20230119
  4. ISATUXIMAB [Suspect]
     Active Substance: ISATUXIMAB
     Dosage: 10 MG/KG, BIW
     Route: 042
     Dates: start: 20230120, end: 20230202
  5. ISATUXIMAB [Suspect]
     Active Substance: ISATUXIMAB
     Dosage: 10 MG/KG, BIW
     Route: 042
     Dates: start: 20230217, end: 20230302
  6. ISATUXIMAB [Suspect]
     Active Substance: ISATUXIMAB
     Dosage: 10 MG/KG, BIW
     Route: 042
     Dates: start: 20230329, end: 20230504
  7. ISATUXIMAB [Suspect]
     Active Substance: ISATUXIMAB
     Dosage: 10 MG/KG, BIW
     Route: 042
     Dates: start: 20230505, end: 20230601
  8. ISATUXIMAB [Suspect]
     Active Substance: ISATUXIMAB
     Dosage: 10 MG/KG, BIW
     Route: 042
     Dates: start: 20230602, end: 20230615
  9. ISATUXIMAB [Suspect]
     Active Substance: ISATUXIMAB
     Dosage: 10 MG/KG, BIW
     Dates: start: 20230630, end: 20230713
  10. ISATUXIMAB [Suspect]
     Active Substance: ISATUXIMAB
     Dosage: 10 MG/KG, BIW
     Dates: start: 20230726, end: 20230823
  11. ISATUXIMAB [Suspect]
     Active Substance: ISATUXIMAB
     Dosage: 10 MG/KG, BIW
     Dates: start: 20230824, end: 20231005
  12. ISATUXIMAB [Suspect]
     Active Substance: ISATUXIMAB
     Dosage: 10 MG/KG, BIW
     Dates: start: 20230824, end: 20231005
  13. ISATUXIMAB [Suspect]
     Active Substance: ISATUXIMAB
     Dosage: 10 MG/KG, BIW
     Dates: start: 20231006, end: 20231101
  14. POMALIDOMIDE [Suspect]
     Active Substance: POMALIDOMIDE
     Indication: Plasma cell myeloma refractory
     Dosage: 4 MG, QD
     Dates: start: 20220926, end: 20221016
  15. POMALIDOMIDE [Suspect]
     Active Substance: POMALIDOMIDE
     Dosage: 4 MG, QD
     Dates: start: 20221026, end: 20221114
  16. POMALIDOMIDE [Suspect]
     Active Substance: POMALIDOMIDE
     Dosage: 4 MG, QD
     Dates: start: 20221122, end: 20221212
  17. POMALIDOMIDE [Suspect]
     Active Substance: POMALIDOMIDE
     Dosage: 4 MG, QD
     Dates: start: 20230120, end: 20230202
  18. POMALIDOMIDE [Suspect]
     Active Substance: POMALIDOMIDE
     Dosage: 4 MG, QD
     Dates: start: 20230217, end: 20230302
  19. POMALIDOMIDE [Suspect]
     Active Substance: POMALIDOMIDE
     Dosage: 4 MG, QD
     Dates: start: 20230602, end: 20230615
  20. POMALIDOMIDE [Suspect]
     Active Substance: POMALIDOMIDE
     Dosage: 4 MG, QD
     Dates: start: 20230726, end: 20230823
  21. POMALIDOMIDE [Suspect]
     Active Substance: POMALIDOMIDE
     Dosage: 4 MG, QD
     Dates: start: 20230824, end: 20231005
  22. POMALIDOMIDE [Suspect]
     Active Substance: POMALIDOMIDE
     Dosage: 4 MG, QD
     Dates: start: 20231026, end: 20231101
  23. DEXAMETHASONE [Suspect]
     Active Substance: DEXAMETHASONE
     Indication: Plasma cell myeloma refractory
     Dosage: 20 MG, QW
     Dates: start: 20220926, end: 20221024
  24. DEXAMETHASONE [Suspect]
     Active Substance: DEXAMETHASONE
     Dosage: 20 MG, QW
     Dates: start: 20221025, end: 20221121
  25. DEXAMETHASONE [Suspect]
     Active Substance: DEXAMETHASONE
     Dosage: 20 MG, QW
     Dates: start: 20221122, end: 20230119
  26. DEXAMETHASONE [Suspect]
     Active Substance: DEXAMETHASONE
     Dosage: 20 MG, QW
     Dates: start: 20230120, end: 20230202
  27. DEXAMETHASONE [Suspect]
     Active Substance: DEXAMETHASONE
     Dosage: 10 MG, QW
     Dates: start: 20230217, end: 20230302
  28. VALACYCLOVIR HYDROCHLORIDE [Concomitant]
     Active Substance: VALACYCLOVIR HYDROCHLORIDE
     Indication: Prophylaxis
     Dosage: UNK
     Dates: start: 20220926
  29. ESOMEPRAZOLE MAGNESIUM [Concomitant]
     Active Substance: ESOMEPRAZOLE\ESOMEPRAZOLE MAGNESIUM\ESOMEPRAZOLE MAGNESIUM DIHYDRATE
     Indication: Gastrooesophageal reflux disease
     Dosage: UNK
     Dates: start: 20220926
  30. SKENAN [Concomitant]
     Active Substance: MORPHINE SULFATE
     Indication: Analgesic therapy
     Dosage: UNK
     Dates: start: 20220908
  31. MORPHINE SULFATE [Concomitant]
     Active Substance: MORPHINE SULFATE
     Indication: Medication overuse headache
     Dosage: UNK
     Dates: start: 20220908
  32. ELIQUIS [Concomitant]
     Active Substance: APIXABAN
     Indication: Thrombosis
     Dosage: UNK
     Dates: start: 20220929, end: 20230307
  33. ELIQUIS [Concomitant]
     Active Substance: APIXABAN
     Dosage: UNK
     Dates: start: 20230307
  34. ERYTHROPOIETIN [Concomitant]
     Active Substance: ERYTHROPOIETIN
     Indication: Marrow hyperplasia
     Dosage: UNK
     Dates: start: 20230307
  35. PENTACARINAT [Concomitant]
     Active Substance: PENTAMIDINE ISETHIONATE
     Indication: Prophylaxis
     Dosage: UNK
     Dates: start: 20221025
  36. DEXCHLORPHENIRAMINE MALEATE [Concomitant]
     Active Substance: DEXCHLORPHENIRAMINE MALEATE
     Indication: Antiallergic therapy
     Dosage: UNK UNK, QCY
     Dates: start: 20220926
  37. ACETAMINOPHEN [Concomitant]
     Active Substance: ACETAMINOPHEN
     Indication: Analgesic therapy
     Dosage: UNK UNK, QCY
     Dates: start: 20220926
  38. AMIODARONE [Concomitant]
     Active Substance: AMIODARONE
     Dosage: UNK
     Dates: start: 20230307
  39. AMIODARONE [Concomitant]
     Active Substance: AMIODARONE
     Dosage: UNK
     Dates: start: 20230403, end: 20230413
  40. FUROSEMIDE [Concomitant]
     Active Substance: FUROSEMIDE
     Dosage: UNK
     Dates: start: 20230307
  41. LOPERAMIDE [Concomitant]
     Active Substance: LOPERAMIDE
     Indication: Diarrhoea
     Dosage: UNK
     Dates: start: 20230217
  42. LEVOFLOXACIN [Concomitant]
     Active Substance: LEVOFLOXACIN
     Indication: Infection
     Dosage: UNK
     Dates: start: 20230307
  43. JARDIANCE [Concomitant]
     Active Substance: EMPAGLIFLOZIN
     Indication: Prophylaxis
     Dosage: UNK
     Dates: start: 20230403
  44. RAMIPRIL [Concomitant]
     Active Substance: RAMIPRIL
     Indication: Prophylaxis
     Dosage: UNK
     Dates: start: 20230403
  45. VALACYCLOVIR HYDROCHLORIDE [Concomitant]
     Active Substance: VALACYCLOVIR HYDROCHLORIDE
     Indication: Ischaemia
     Dosage: UNK
     Dates: start: 20230403
  46. FUNGIZONE [Concomitant]
     Active Substance: AMPHOTERICIN B
     Indication: Antifungal treatment
     Dosage: UNK
     Dates: start: 20230217

REACTIONS (2)
  - Pneumococcal infection [Recovered/Resolved]
  - Neutropenia [Recovered/Resolved]

NARRATIVE: CASE EVENT DATE: 20230919
